FAERS Safety Report 9465078 (Version 1)
Quarter: 2013Q3

REPORT INFORMATION
  Report Type: Report from Study
  Country: US (occurrence: US)
  Receive Date: 20130819
  Receipt Date: 20130819
  Transmission Date: 20140515
  Serious: Yes (Other)
  Sender: FDA-Public Use
  Company Number: US-ABBOTT-13P-163-1132288-00

PATIENT
  Age: 52 Year
  Sex: Male

DRUGS (5)
  1. HUMIRA [Suspect]
     Indication: CROHN^S DISEASE
     Dates: start: 20121227
  2. ASACOL [Concomitant]
     Indication: CROHN^S DISEASE
  3. TRAMADOL [Concomitant]
     Indication: MIGRAINE
  4. VITAMIN D [Concomitant]
     Indication: VITAMIN SUPPLEMENTATION
  5. FISH OIL [Concomitant]
     Indication: SUPPLEMENTATION THERAPY

REACTIONS (7)
  - Inguinal hernia [Not Recovered/Not Resolved]
  - Abdominal pain [Unknown]
  - Erythema [Unknown]
  - Eczema [Unknown]
  - Urticaria [Unknown]
  - Rash erythematous [Unknown]
  - Rash pruritic [Unknown]
